FAERS Safety Report 7393901-6 (Version None)
Quarter: 2011Q2

REPORT INFORMATION
  Report Type: 
  Country: None (occurrence: None)
  Receive Date: 20110405
  Receipt Date: 20110328
  Transmission Date: 20111010
  Serious: Yes (Hospitalization, Other)
  Sender: FDA-Public Use
  Company Number: US-ASTRAZENECA-2011SE17784

PATIENT
  Sex: Male
  Weight: 62.1 kg

DRUGS (6)
  1. REMERON [Concomitant]
     Dates: start: 20050401
  2. ELAVIL [Concomitant]
     Dosage: 25 MG TID + 75 MG AT BED TIME
     Dates: start: 20060601
  3. SEROQUEL [Suspect]
     Route: 048
     Dates: start: 20050401
  4. EFFEXOR [Concomitant]
     Dates: start: 20050401
  5. PROTONIX [Concomitant]
     Dates: start: 20060601
  6. MIRALAX [Concomitant]
     Dates: start: 20060601

REACTIONS (6)
  - PNEUMOTHORAX [None]
  - TYPE 1 DIABETES MELLITUS [None]
  - DEPRESSION [None]
  - HYPERLIPIDAEMIA [None]
  - TYPE 2 DIABETES MELLITUS [None]
  - ABDOMINAL PAIN [None]
